FAERS Safety Report 18857703 (Version 2)
Quarter: 2021Q1

REPORT INFORMATION
  Report Type: Spontaneous
  Country: US (occurrence: US)
  Receive Date: 20210208
  Receipt Date: 20210216
  Transmission Date: 20210420
  Serious: No
  Sender: FDA-Public Use
  Company Number: US-AMGEN-USASP2021018627

PATIENT
  Sex: Male

DRUGS (2)
  1. TREMFYA ONE PRESS [Concomitant]
     Dosage: 100 MILLIGRAM PER MILLILITRE
  2. OTEZLA [Suspect]
     Active Substance: APREMILAST
     Indication: PSORIASIS
     Dosage: 30 MILLIGRAM, BID
     Route: 048

REACTIONS (1)
  - COVID-19 [Not Recovered/Not Resolved]
